FAERS Safety Report 7458564-X (Version None)
Quarter: 2011Q2

REPORT INFORMATION
  Report Type: 
  Country: None (occurrence: None)
  Receive Date: 20110504
  Receipt Date: 20110428
  Transmission Date: 20111010
  Serious: Yes (Hospitalization)
  Sender: FDA-Public Use
  Company Number: SK-B.I. PHARMACEUTICALS,INC./RIDGEFIELD-2010-BP-09770YA

PATIENT
  Sex: Male
  Weight: 105 kg

DRUGS (7)
  1. HELICID (OMEPRAZOLE) [Concomitant]
     Indication: GASTRITIS
     Dosage: 200 MCG
     Route: 048
     Dates: start: 20090805
  2. TAMSULOSIN HCL [Suspect]
     Indication: URINARY TRACT DISORDER
     Dosage: 0.4 MG
     Route: 048
     Dates: start: 20100408, end: 20100630
  3. AMLODIPINE BESYLATE [Concomitant]
     Indication: HYPERTENSION
     Dosage: 5 MG
     Route: 048
     Dates: start: 20060413
  4. TICLOPIDIN (TICLOPIDINE HYDROCHLORIDE) [Concomitant]
     Indication: ANTICOAGULANT THERAPY
     Dosage: 500 MCG
     Route: 048
     Dates: start: 20060413, end: 20100501
  5. TAMSULOSIN HCL [Suspect]
     Indication: HYPERTONIC BLADDER
  6. TENOLOC (ATENOLOL) [Concomitant]
     Indication: HYPERTENSION
     Dosage: 400 MCG
     Route: 048
     Dates: start: 20020708
  7. NOLIPREL (INDAPAMIDE) [Concomitant]
     Indication: HYPERTENSION
     Dosage: 2.5 MCG
     Route: 048
     Dates: start: 20010707

REACTIONS (2)
  - HIP ARTHROPLASTY [None]
  - URINARY RETENTION [None]
